FAERS Safety Report 11334062 (Version 2)
Quarter: 2016Q3

REPORT INFORMATION
  Report Type: Spontaneous
  Country: US (occurrence: US)
  Receive Date: 20150803
  Receipt Date: 20160727
  Transmission Date: 20161109
  Serious: No
  Sender: FDA-Public Use
  Company Number: US-SA-2015SA060474

PATIENT
  Age: 49 Year
  Sex: Female
  Weight: 90 kg

DRUGS (1)
  1. AMBIEN [Suspect]
     Active Substance: ZOLPIDEM TARTRATE
     Indication: RHEUMATOID ARTHRITIS
     Dosage: STOP AT ONE MONTH AGO
     Route: 048
     Dates: start: 20150425

REACTIONS (1)
  - Hypersensitivity [Unknown]
